FAERS Safety Report 14860859 (Version 1)
Quarter: 2018Q2

REPORT INFORMATION
  Report Type: Spontaneous
  Country: US (occurrence: US)
  Receive Date: 20180508
  Receipt Date: 20180508
  Transmission Date: 20180711
  Serious: No
  Sender: FDA-Public Use
  Company Number: US-GLENMARK PHARMACEUTICALS-2017GMK030414

PATIENT

DRUGS (3)
  1. EXCEDRIN TENSION [Concomitant]
     Indication: MIGRAINE
     Dosage: EVERY MORNING AS NEEDED TWICE FOR 6 HOURS FOR A TOTAL OF 4 DOSES
     Route: 065
  2. TOPIRAMATE. [Suspect]
     Active Substance: TOPIRAMATE
     Indication: MIGRAINE
     Dosage: 25 MG, HS (BEFORE BEDTIME)
     Route: 048
     Dates: start: 20171220, end: 20171225
  3. TOPIRAMATE. [Suspect]
     Active Substance: TOPIRAMATE
     Dosage: UNK, HALF DOSE
     Route: 048
     Dates: start: 20171226, end: 20171229

REACTIONS (6)
  - Insomnia [Not Recovered/Not Resolved]
  - Wrong technique in product usage process [Unknown]
  - Product use issue [Unknown]
  - Intentional product use issue [Unknown]
  - Dizziness [Not Recovered/Not Resolved]
  - Nausea [Not Recovered/Not Resolved]

NARRATIVE: CASE EVENT DATE: 201712
